FAERS Safety Report 8493637-4 (Version None)
Quarter: 2012Q3

REPORT INFORMATION
  Report Type: 
  Country: None (occurrence: None)
  Receive Date: 20120706
  Receipt Date: 20090204
  Transmission Date: 20120928
  Serious: Yes (Other)
  Sender: FDA-Public Use
  Company Number: BR-ROCHE-612950

PATIENT
  Sex: Female
  Weight: 56 kg

DRUGS (7)
  1. LEXOTAN [Suspect]
     Indication: PANIC ATTACK
     Route: 065
  2. ATORVASTATIN CALCIUM [Suspect]
     Indication: ARTERIAL OCCLUSIVE DISEASE
     Route: 065
  3. CLONAZEPAM [Suspect]
     Dosage: OTHER INDICATION CHEST PAIN TAKES 2.5 MG (ADDITIONAL 0.5 MG) WHEN SHE PRESENTS PANIC SYNDROME
     Route: 048
  4. ANGIPRESS CD [Concomitant]
     Indication: BLOOD PRESSURE ABNORMAL
     Dosage: DOSE: 25/12.5 MG
  5. LEXOTAN [Suspect]
     Route: 065
  6. CLONAZEPAM [Suspect]
     Indication: ANXIETY
     Dosage: OTHER INDICATION: CHEST PAIN
     Route: 048
     Dates: start: 20040101, end: 20060101
  7. SYNTHROID [Concomitant]
     Indication: THYROID DISORDER

REACTIONS (8)
  - ARTERIAL OCCLUSIVE DISEASE [None]
  - GASTRIC DISORDER [None]
  - DRY EYE [None]
  - ANXIETY [None]
  - HEART RATE INCREASED [None]
  - CHEST PAIN [None]
  - DRY MOUTH [None]
  - FLUSHING [None]
